FAERS Safety Report 20471178 (Version 3)
Quarter: 2022Q2

REPORT INFORMATION
  Report Type: Spontaneous
  Country: IT (occurrence: IT)
  Receive Date: 20220214
  Receipt Date: 20220426
  Transmission Date: 20220721
  Serious: Yes (Death, Other)
  Sender: FDA-Public Use
  Company Number: IT-UCBSA-2022006459

PATIENT

DRUGS (1)
  1. LEVETIRACETAM [Suspect]
     Active Substance: LEVETIRACETAM
     Indication: Prophylaxis
     Dosage: MEDIAN DOSE 2,000MG

REACTIONS (14)
  - Brain neoplasm [Fatal]
  - Sleep disorder [Unknown]
  - Aberrant motor behaviour [Unknown]
  - Eating disorder [Unknown]
  - Irritability [Unknown]
  - Disinhibition [Unknown]
  - Apathy [Unknown]
  - Euphoric mood [Unknown]
  - Anxiety [Unknown]
  - Depression [Unknown]
  - Agitation [Unknown]
  - Delirium [Unknown]
  - Hallucination [Unknown]
  - Product use in unapproved indication [Unknown]
